FAERS Safety Report 16999802 (Version 6)
Quarter: 2020Q4

REPORT INFORMATION
  Report Type: Spontaneous
  Country: US (occurrence: US)
  Receive Date: 20191106
  Receipt Date: 20201019
  Transmission Date: 20210113
  Serious: No
  Sender: FDA-Public Use
  Company Number: US-PFIZER INC-2018421695

PATIENT
  Age: 57 Year
  Sex: Female

DRUGS (3)
  1. DETROL LA [Suspect]
     Active Substance: TOLTERODINE TARTRATE
     Dosage: 4 MG, 4X/DAY (1 CAPSULE 4 TIMES A DAY)
  2. DETROL LA [Suspect]
     Active Substance: TOLTERODINE TARTRATE
     Dosage: UNK
  3. DETROL LA [Suspect]
     Active Substance: TOLTERODINE TARTRATE
     Dosage: UNK, 1X/DAY [4 AM ]

REACTIONS (5)
  - Intentional product misuse [Unknown]
  - Condition aggravated [Recovering/Resolving]
  - Off label use [Unknown]
  - Treatment failure [Unknown]
  - Product use issue [Unknown]
